FAERS Safety Report 10244473 (Version 2)
Quarter: 2014Q4

REPORT INFORMATION
  Report Type: Spontaneous
  Country: US (occurrence: None)
  Receive Date: 20140617
  Receipt Date: 20141217
  Transmission Date: 20150528
  Serious: No
  Sender: FDA-Public Use
  Company Number: 2014CT000044

PATIENT
  Age: 52 Year
  Sex: Male
  Weight: 95.26 kg

DRUGS (12)
  1. CRESTOR [Concomitant]
     Active Substance: ROSUVASTATIN CALCIUM
  2. FLECAINIDE [Concomitant]
     Active Substance: FLECAINIDE
  3. BYDUREON [Concomitant]
     Active Substance: EXENATIDE
  4. CITALOPRAM [Concomitant]
     Active Substance: CITALOPRAM HYDROBROMIDE
  5. LOSARTAN [Concomitant]
     Active Substance: LOSARTAN
  6. LEVOTHYROXINE [Concomitant]
     Active Substance: LEVOTHYROXINE
  7. KORLYM [Suspect]
     Active Substance: MIFEPRISTONE
     Indication: CUSHING^S SYNDROME
     Route: 048
     Dates: start: 20140404
  8. ATENOLOL. [Concomitant]
     Active Substance: ATENOLOL
  9. FARXIGA [Concomitant]
     Active Substance: DAPAGLIFLOZIN PROPANEDIOL
  10. ASPIRIN. [Concomitant]
     Active Substance: ASPIRIN
  11. SPIRONOLACTONE. [Concomitant]
     Active Substance: SPIRONOLACTONE
  12. CABERGOLINE. [Concomitant]
     Active Substance: CABERGOLINE

REACTIONS (8)
  - Gait disturbance [None]
  - Skin hyperpigmentation [None]
  - Heart rate increased [None]
  - Abdominal pain upper [None]
  - Musculoskeletal chest pain [None]
  - Fatigue [None]
  - Nausea [None]
  - Feeling drunk [None]

NARRATIVE: CASE EVENT DATE: 201404
